FAERS Safety Report 12688247 (Version 3)
Quarter: 2017Q3

REPORT INFORMATION
  Report Type: Report from Study
  Country: DE (occurrence: DE)
  Receive Date: 20160825
  Receipt Date: 20170925
  Transmission Date: 20171127
  Serious: Yes (Other)
  Sender: FDA-Public Use
  Company Number: PHHY2016DE103062

PATIENT
  Sex: Female
  Weight: 62.1 kg

DRUGS (2)
  1. COSENTYX [Suspect]
     Active Substance: SECUKINUMAB
     Indication: PSORIASIS
     Dosage: 300 MG, PER APPLICATION
     Route: 065
     Dates: start: 20151210
  2. BETAMETHASONE VALERATE. [Concomitant]
     Active Substance: BETAMETHASONE VALERATE
     Indication: PSORIASIS
     Dosage: UNK, BID
     Route: 061
     Dates: start: 20160504

REACTIONS (3)
  - Vasomotor rhinitis [Recovered/Resolved]
  - Pharyngitis bacterial [Recovered/Resolved]
  - Nasal inflammation [Recovered/Resolved]

NARRATIVE: CASE EVENT DATE: 201602
